FAERS Safety Report 8886185 (Version 1)
Quarter: 2012Q4

REPORT INFORMATION
  Report Type: 
  Country: US (occurrence: US)
  Receive Date: 20121105
  Receipt Date: 20121105
  Transmission Date: 20130627
  Serious: Yes (Life-Threatening, Hospitalization)
  Sender: FDA-Public Use
  Company Number: US-JNJFOC-20121014878

PATIENT
  Sex: Male
  Weight: 90.45 kg

DRUGS (17)
  1. TYLENOL [Suspect]
     Route: 065
  2. TYLENOL [Suspect]
     Indication: PRODUCT USED FOR UNKNOWN INDICATION
     Route: 065
  3. KETEK [Suspect]
     Indication: BRONCHITIS
     Route: 048
     Dates: start: 2005
  4. KETEK [Suspect]
     Indication: BRONCHITIS
     Route: 048
     Dates: start: 2006, end: 2006
  5. KETEK [Suspect]
     Indication: RESPIRATORY TRACT INFECTION
     Route: 048
     Dates: start: 2005
  6. KETEK [Suspect]
     Indication: RESPIRATORY TRACT INFECTION
     Route: 048
     Dates: start: 2006, end: 2006
  7. NITROQUICK [Concomitant]
     Route: 065
  8. DEMADEX [Concomitant]
     Route: 065
  9. LASIX [Concomitant]
     Route: 065
  10. LANSOPRAZOLE [Concomitant]
  11. THEOPHYLLINE [Concomitant]
  12. ATROVENT [Concomitant]
  13. SALBUTAMOL [Concomitant]
  14. LORAZEPAM [Concomitant]
  15. NIFEDIPINE [Concomitant]
  16. GUAIFENESIN [Concomitant]
     Route: 065
  17. LORATADINE [Concomitant]

REACTIONS (8)
  - Hepatotoxicity [Recovered/Resolved]
  - Liver disorder [Unknown]
  - Ascites [Unknown]
  - Splenomegaly [Recovered/Resolved]
  - Portal hypertension [Unknown]
  - Alanine aminotransferase increased [None]
  - Aspartate aminotransferase increased [None]
  - Blood bilirubin increased [None]
